FAERS Safety Report 6964400-8 (Version None)
Quarter: 2010Q3

REPORT INFORMATION
  Report Type: 
  Country: None (occurrence: None)
  Receive Date: 20100903
  Receipt Date: 20100826
  Transmission Date: 20110219
  Serious: Yes (Other)
  Sender: FDA-Public Use
  Company Number: US-PFIZER INC-2010100099

PATIENT
  Sex: Female

DRUGS (1)
  1. LIPITOR [Suspect]
     Dosage: UNK
     Dates: start: 20050101

REACTIONS (4)
  - ARTHRITIS [None]
  - CONFUSIONAL STATE [None]
  - MEMORY IMPAIRMENT [None]
  - PAIN [None]
